FAERS Safety Report 12800657 (Version 1)
Quarter: 2016Q3

REPORT INFORMATION
  Report Type: Report from Study
  Country: CZ (occurrence: CZ)
  Receive Date: 20160930
  Receipt Date: 20160930
  Transmission Date: 20161109
  Serious: Yes (Hospitalization)
  Sender: FDA-Public Use
  Company Number: CZ-ASTRAZENECA-2013SE75077

PATIENT
  Age: 20839 Day
  Sex: Male
  Weight: 105 kg

DRUGS (8)
  1. TOLURA [Concomitant]
     Indication: HYPERCHOLESTEROLAEMIA
     Dosage: DAILY
     Dates: start: 200202
  2. TICAGRELOR [Suspect]
     Active Substance: TICAGRELOR
     Indication: PERIPHERAL ARTERIAL OCCLUSIVE DISEASE
     Route: 048
     Dates: start: 20130822
  3. TOLURA [Concomitant]
     Indication: HYPERTENSION
     Dosage: DAILY
     Dates: start: 200202
  4. TOLURA [Concomitant]
     Indication: HYPERCHOLESTEROLAEMIA
     Dosage: DAILY
     Dates: start: 201005
  5. TORVAZIN [Concomitant]
     Indication: HYPERCHOLESTEROLAEMIA
     Dosage: DAILY
     Dates: start: 201005
  6. TOLURA [Concomitant]
     Indication: HYPERTENSION
     Dosage: DAILY
     Dates: start: 201005
  7. BETAMED [Concomitant]
     Indication: HYPERTENSION
     Dosage: DAILY
     Dates: start: 200202
  8. INDAPAMID [Concomitant]
     Active Substance: INDAPAMIDE
     Indication: HYPERTENSION
     Dosage: DAILY
     Dates: start: 200202

REACTIONS (1)
  - Abdominal pain [Recovered/Resolved]

NARRATIVE: CASE EVENT DATE: 20131006
